FAERS Safety Report 19277792 (Version 1)
Quarter: 2021Q2

REPORT INFORMATION
  Report Type: Spontaneous
  Country: JP (occurrence: JP)
  Receive Date: 20210520
  Receipt Date: 20210520
  Transmission Date: 20210717
  Serious: Yes (Hospitalization)
  Sender: FDA-Public Use
  Company Number: JP-TEVA-2021-JP-1912168

PATIENT
  Age: 55 Year
  Sex: Male

DRUGS (2)
  1. MINOCYCLINE [Suspect]
     Active Substance: MINOCYCLINE HYDROCHLORIDE
     Indication: PNEUMONIA MYCOPLASMAL
     Dosage: 200 MILLIGRAM DAILY; ADMINISTERED FOR }=60 MINUTES
     Route: 041
  2. RUXOLITINIB [Concomitant]
     Active Substance: RUXOLITINIB
     Indication: POLYCYTHAEMIA VERA
     Route: 048

REACTIONS (7)
  - Pulmonary embolism [Recovering/Resolving]
  - Thrombophlebitis [Recovering/Resolving]
  - Vascular pain [Recovering/Resolving]
  - Splenic infarction [Recovering/Resolving]
  - Right ventricular failure [Recovering/Resolving]
  - Thrombosis [Recovering/Resolving]
  - Hypoxia [Recovering/Resolving]
